FAERS Safety Report 12186019 (Version 1)
Quarter: 2016Q1

REPORT INFORMATION
  Report Type: Other
  Country: IT (occurrence: IT)
  Receive Date: 20160317
  Receipt Date: 20160317
  Transmission Date: 20160526
  Serious: Yes (Hospitalization)
  Sender: FDA-Public Use
  Company Number: IT-JUBILANT GENERICS LIMITED-1049231

PATIENT
  Age: 12 Year
  Sex: Female

DRUGS (1)
  1. MONTELUKAST SODIUM. [Suspect]
     Active Substance: MONTELUKAST SODIUM

REACTIONS (1)
  - Metamorphopsia [Recovered/Resolved]

NARRATIVE: CASE EVENT DATE: 20160307
